FAERS Safety Report 4491545-7 (Version None)
Quarter: 2004Q4

REPORT INFORMATION
  Report Type: 
  Country: None (occurrence: None)
  Receive Date: 20041103
  Receipt Date: 20041025
  Transmission Date: 20050328
  Serious: Yes (Other)
  Sender: FDA-Public Use
  Company Number: PHEH2004US11461

PATIENT
  Age: 57 Year
  Sex: Female

DRUGS (2)
  1. ZELNORM [Suspect]
     Indication: IRRITABLE BOWEL SYNDROME
     Dosage: UNK, BID
     Route: 048
     Dates: start: 20030101
  2. ZELNORM [Suspect]
     Dosage: UNK, TID
     Route: 048
     Dates: end: 20031201

REACTIONS (4)
  - OCCULT BLOOD POSITIVE [None]
  - PROCTALGIA [None]
  - RECTAL HAEMORRHAGE [None]
  - STOMACH DISCOMFORT [None]
